FAERS Safety Report 8413228-0 (Version None)
Quarter: 2012Q2

REPORT INFORMATION
  Report Type: 
  Country: None (occurrence: None)
  Receive Date: 20120605
  Receipt Date: 20120529
  Transmission Date: 20120825
  Serious: No
  Sender: FDA-Public Use
  Company Number: US-B.I. PHARMACEUTICALS,INC./RIDGEFIELD-2011-BP-13344BP

PATIENT
  Sex: Male

DRUGS (8)
  1. CINNAMON [Concomitant]
     Indication: DIABETES MELLITUS
  2. CARVEDILOL [Concomitant]
     Indication: HYPERTENSION
     Dosage: 25 MG
     Route: 048
     Dates: start: 20060101
  3. VITAMIN TAB [Concomitant]
     Indication: VITAMIN SUPPLEMENTATION
     Route: 048
     Dates: start: 19910101
  4. CINNAMON [Concomitant]
     Indication: VITAMIN SUPPLEMENTATION
     Dosage: 1000 MG
     Route: 048
     Dates: start: 20090101
  5. VITAMIN TAB [Concomitant]
     Indication: ROUTINE HEALTH MAINTENANCE
  6. PRADAXA [Suspect]
     Indication: ATRIAL FIBRILLATION
     Dosage: 300 MG
     Route: 048
     Dates: start: 20101201
  7. ZOCOR [Concomitant]
     Indication: BLOOD CHOLESTEROL INCREASED
     Dosage: 20 MG
     Route: 048
     Dates: start: 20060101
  8. LISINOPRIL [Concomitant]
     Indication: HYPERTENSION
     Dosage: 5 MG
     Route: 048
     Dates: start: 20060101

REACTIONS (6)
  - DYSPEPSIA [None]
  - ABDOMINAL DISCOMFORT [None]
  - HYPERCHLORHYDRIA [None]
  - SLEEP DISORDER [None]
  - FATIGUE [None]
  - COLONIC POLYP [None]
